FAERS Safety Report 9815831 (Version 3)
Quarter: 2014Q1

REPORT INFORMATION
  Report Type: Spontaneous
  Country: US (occurrence: None)
  Receive Date: 20140110
  Receipt Date: 20140219
  Transmission Date: 20141002
  Serious: Yes (Death, Hospitalization)
  Sender: FDA-Public Use
  Company Number: AUR-APL-2014-00107

PATIENT
  Age: 71 Year
  Sex: Male

DRUGS (13)
  1. METOPROLOL [Suspect]
     Indication: HYPERTENSION
     Dosage: ORAL
     Route: 048
     Dates: start: 20110823, end: 20130707
  2. ONDANSETRON [Suspect]
     Indication: PROPHYLAXIS OF NAUSEA AND VOMITING
     Dosage: UNKNOWN
     Dates: start: 20111025, end: 20130707
  3. OXYCODONE [Suspect]
     Indication: PAIN PROPHYLAXIS
     Dosage: ORAL
     Route: 048
     Dates: start: 20130530, end: 20130707
  4. PAROXETINE [Suspect]
     Indication: DEPRESSION
     Dosage: UNKNOWN
     Dates: start: 20111025, end: 20130707
  5. LORAZEPAM [Suspect]
     Indication: ANXIETY
     Dates: start: 20130506, end: 20130707
  6. MORPHINE SULFATE [Suspect]
     Indication: PRODUCT USED FOR UNKNOWN INDICATION
     Dosage: ORAL
     Route: 048
  7. COLACE [Suspect]
     Indication: CONSTIPATION PROPHYLAXIS
     Dosage: ORAL
     Route: 048
     Dates: start: 20130514, end: 20130707
  8. LOVENOX [Suspect]
     Indication: PRODUCT USED FOR UNKNOWN INDICATION
     Dosage: ORAL
     Route: 048
  9. VITAMIN B12 [Suspect]
     Indication: VITAMIN SUPPLEMENTATION
     Dates: start: 20111025, end: 20130707
  10. VITAMIN D3 (COLECALCIFEROL) [Suspect]
     Indication: PRODUCT USED FOR UNKNOWN INDICATION
     Dosage: ORAL
  11. ATROPINE SULFATE/DIPHENOXYLATE HYDROCHLORIDE [Suspect]
     Indication: DIARRHOEA
     Dosage: AS REQUIRED
     Route: 048
     Dates: start: 20111212, end: 20130707
  12. VITAMIN B COMPLEX [Suspect]
     Indication: VITAMIN SUPPLEMENTATION
     Dosage: AS REQUIRED
     Route: 048
     Dates: start: 20130514, end: 20130707
  13. WARFARIN SODIUM (WARFARIN SODIUM) [Concomitant]

REACTIONS (10)
  - Cardio-respiratory arrest [None]
  - Haemorrhage intracranial [None]
  - Renal failure [None]
  - Acidosis [None]
  - Unresponsive to stimuli [None]
  - Sinus tachycardia [None]
  - Pain in extremity [None]
  - Arthralgia [None]
  - Pulmonary embolism [None]
  - Haematoma [None]
